FAERS Safety Report 16325817 (Version 1)
Quarter: 2019Q2

REPORT INFORMATION
  Report Type: Spontaneous
  Country: US (occurrence: US)
  Receive Date: 20190517
  Receipt Date: 20190517
  Transmission Date: 20190711
  Serious: Yes (Hospitalization, Other)
  Sender: FDA-Public Use
  Company Number: US-SA-2019SA122845

PATIENT
  Age: 54 Year
  Sex: Male

DRUGS (10)
  1. CLOPIDOGREL BISULFATE. [Suspect]
     Active Substance: CLOPIDOGREL BISULFATE
     Indication: ACUTE MYOCARDIAL INFARCTION
     Dosage: LOADING DOSE
  2. COUMADIN [Concomitant]
     Active Substance: WARFARIN SODIUM
     Indication: ACUTE MYOCARDIAL INFARCTION
  3. FUROSEMIDE. [Concomitant]
     Active Substance: FUROSEMIDE
     Indication: ACUTE MYOCARDIAL INFARCTION
     Dosage: UNK UNK, UNK
     Route: 065
  4. CLOPIDOGREL BISULFATE. [Suspect]
     Active Substance: CLOPIDOGREL BISULFATE
     Indication: ANTIPLATELET THERAPY
  5. ATORVASTATIN [Suspect]
     Active Substance: ATORVASTATIN
     Indication: ACUTE MYOCARDIAL INFARCTION
     Dosage: UNK UNK, UNK
     Route: 065
  6. FUROSEMIDE. [Concomitant]
     Active Substance: FUROSEMIDE
     Indication: ACUTE KIDNEY INJURY
  7. CARVEDILOL. [Concomitant]
     Active Substance: CARVEDILOL
     Indication: ACUTE MYOCARDIAL INFARCTION
  8. ACETYLSALICYLIC ACID [Concomitant]
     Active Substance: ASPIRIN
     Indication: ACUTE MYOCARDIAL INFARCTION
  9. ACETYLSALICYLIC ACID [Concomitant]
     Active Substance: ASPIRIN
     Indication: ANTIPLATELET THERAPY
     Dosage: UNK
  10. ACETYLSALICYLIC ACID [Concomitant]
     Active Substance: ASPIRIN
     Indication: PROPHYLAXIS

REACTIONS (14)
  - Joint range of motion decreased [Recovered/Resolved]
  - Swelling [Recovered/Resolved]
  - Paraesthesia [Unknown]
  - Pain in extremity [Recovered/Resolved]
  - Pain [Recovered/Resolved]
  - Stenosis [Unknown]
  - Musculoskeletal pain [Recovered/Resolved]
  - Arthralgia [Recovered/Resolved]
  - Inflammatory marker increased [Recovered/Resolved]
  - Hypoaesthesia [Unknown]
  - Polyarthritis [Recovered/Resolved]
  - Condition aggravated [Recovered/Resolved]
  - Tenderness [Recovered/Resolved]
  - Myalgia [Unknown]
